FAERS Safety Report 7614673-3 (Version None)
Quarter: 2011Q3

REPORT INFORMATION
  Report Type: 
  Country: None (occurrence: None)
  Receive Date: 20110708
  Receipt Date: 20110629
  Transmission Date: 20111222
  Serious: Yes (Hospitalization, Other)
  Sender: FDA-Public Use
  Company Number: USA/USA/11/0018904

PATIENT
  Age: 56 Year
  Sex: Male

DRUGS (10)
  1. ACETAMINOPHEN [Concomitant]
  2. METHOTREXATE [Suspect]
     Indication: PRODUCT USED FOR UNKNOWN INDICATION
     Dosage: 2.5 MG, 6 IN 1 WK,
  3. TRAZODONE HCL [Concomitant]
  4. METOLAZONE [Concomitant]
  5. HUMIRA [Suspect]
     Indication: RHEUMATOID ARTHRITIS
     Dosage: 40MG/0.8ML PRE-FILLED SYRINGE, INJECTION
     Dates: start: 20101216, end: 20110401
  6. POTASSIUM CHLORIDE [Concomitant]
  7. AUGMENTIN '125' [Suspect]
     Indication: CELLULITIS
  8. VICODIN [Concomitant]
  9. FOLIC ACID [Concomitant]
  10. TRAMADOL HYDROCHLORIDE [Concomitant]

REACTIONS (8)
  - HERPES ZOSTER [None]
  - CONDITION AGGRAVATED [None]
  - PRODUCT QUALITY ISSUE [None]
  - PSORIATIC ARTHROPATHY [None]
  - BLOOD PRESSURE INCREASED [None]
  - CELLULITIS [None]
  - EAR LOBE INFECTION [None]
  - PAIN [None]
